FAERS Safety Report 24453892 (Version 2)
Quarter: 2024Q4

REPORT INFORMATION
  Report Type: Report from Study
  Country: US (occurrence: US)
  Receive Date: 20241017
  Receipt Date: 20241018
  Transmission Date: 20250114
  Serious: No
  Sender: ROCHE
  Company Number: US-ROCHE-3435001

PATIENT
  Age: 77 Year
  Sex: Female

DRUGS (11)
  1. RITUXAN [Suspect]
     Active Substance: RITUXIMAB
     Indication: Interstitial lung disease
     Dosage: STRENGTH: 10 MG/ML (50 ML)?1000 MG  WEEK 0 AND WEEK 3 EVERY 6 MONTHS
     Route: 041
  2. RITUXAN [Suspect]
     Active Substance: RITUXIMAB
     Indication: Immunology test abnormal
  3. CELLCEPT [Suspect]
     Active Substance: MYCOPHENOLATE MOFETIL
     Indication: Product used for unknown indication
     Route: 065
  4. PROMETHAZINE [Concomitant]
     Active Substance: PROMETHAZINE HYDROCHLORIDE
  5. ATENOLOL [Concomitant]
     Active Substance: ATENOLOL
  6. FUROSEMIDE [Concomitant]
     Active Substance: FUROSEMIDE
  7. PRAVASTATIN [Concomitant]
     Active Substance: PRAVASTATIN
  8. FAMOTIDINE [Concomitant]
     Active Substance: FAMOTIDINE
  9. LOSARTAN [Concomitant]
     Active Substance: LOSARTAN
  10. PREDNISONE [Concomitant]
     Active Substance: PREDNISONE
  11. ZOFRAN [Concomitant]
     Active Substance: ONDANSETRON HYDROCHLORIDE

REACTIONS (2)
  - Off label use [Unknown]
  - Drug hypersensitivity [Unknown]
